FAERS Safety Report 9322509 (Version 1)
Quarter: 2013Q2

REPORT INFORMATION
  Report Type: Spontaneous
  Country: FR (occurrence: FR)
  Receive Date: 20130531
  Receipt Date: 20130531
  Transmission Date: 20140414
  Serious: Yes (Hospitalization)
  Sender: FDA-Public Use
  Company Number: FR-PFIZER INC-2013162697

PATIENT
  Age: 66 Year
  Sex: Female

DRUGS (16)
  1. SOLU-MEDROL [Suspect]
     Indication: PREMEDICATION
     Dosage: UNK
     Dates: start: 201208, end: 201212
  2. HERCEPTIN [Suspect]
     Indication: CHEMOTHERAPY
     Dosage: UNK
     Dates: start: 20120820, end: 20121229
  3. TAXOL [Suspect]
     Indication: CHEMOTHERAPY
     Dosage: UNK
     Dates: start: 20120917, end: 20120929
  4. PRIMPERAN [Suspect]
     Indication: PREMEDICATION
     Dosage: UNK
     Dates: start: 201208, end: 201212
  5. ONDANSETRON [Suspect]
     Indication: PREMEDICATION
     Dosage: UNK
     Dates: start: 201208, end: 201212
  6. POLARAMINE [Suspect]
     Indication: PREMEDICATION
     Dosage: UNK
     Dates: start: 201212, end: 201212
  7. RANITIDINE [Suspect]
     Indication: PREMEDICATION
     Dosage: UNK
     Dates: end: 201212
  8. ARANESP [Suspect]
     Indication: ANAEMIA
     Dosage: UNK
     Dates: start: 201210, end: 201212
  9. KARDEGIC [Concomitant]
     Dosage: UNK
  10. MOPRAL [Concomitant]
     Dosage: UNK
  11. SECTRAL [Concomitant]
     Dosage: UNK
  12. CRESTOR [Concomitant]
     Dosage: UNK
  13. CORDARONE [Concomitant]
     Dosage: UNK
  14. LEVOTHYROX [Concomitant]
     Dosage: UNK
  15. LASILIX [Concomitant]
     Dosage: UNK
  16. PAROXETINE [Concomitant]
     Dosage: UNK

REACTIONS (2)
  - Cardiac failure [Recovered/Resolved with Sequelae]
  - Bronchitis [Unknown]
